FAERS Safety Report 7966533-6 (Version None)
Quarter: 2011Q4

REPORT INFORMATION
  Report Type: 
  Country: None (occurrence: None)
  Receive Date: 20111208
  Receipt Date: 20111201
  Transmission Date: 20120403
  Serious: Yes (Other)
  Sender: FDA-Public Use
  Company Number: DE-ASTRAZENECA-2011SE73031

PATIENT
  Sex: Male

DRUGS (2)
  1. ASPIRIN [Concomitant]
     Route: 048
     Dates: start: 20110601
  2. BRILIQUE [Suspect]
     Indication: ELECTIVE SURGERY
     Route: 048
     Dates: start: 20110601, end: 20111101

REACTIONS (2)
  - INTESTINAL HAEMORRHAGE [None]
  - OFF LABEL USE [None]
